FAERS Safety Report 8545478-7 (Version None)
Quarter: 2012Q3

REPORT INFORMATION
  Report Type: 
  Country: None (occurrence: None)
  Receive Date: 20120727
  Receipt Date: 20111108
  Transmission Date: 20120928
  Serious: No
  Sender: FDA-Public Use
  Company Number: US-ASTRAZENECA-2011SE67941

PATIENT
  Age: 68 Year
  Sex: Male
  Weight: 76.2 kg

DRUGS (4)
  1. PRAVASTATIN [Concomitant]
     Indication: HYPERCHOLESTEROLAEMIA
  2. NAMENDA [Concomitant]
  3. SEROQUEL XR [Suspect]
     Route: 048
     Dates: start: 20100701
  4. CELEXA [Concomitant]

REACTIONS (7)
  - MOOD ALTERED [None]
  - PARANOIA [None]
  - DISORIENTATION [None]
  - BELLIGERENCE [None]
  - PARKINSON'S DISEASE [None]
  - INCORRECT DOSE ADMINISTERED [None]
  - DRUG DOSE OMISSION [None]
